FAERS Safety Report 9015282 (Version 1)
Quarter: 2013Q1

REPORT INFORMATION
  Report Type: Spontaneous
  Country: FR (occurrence: FR)
  Receive Date: 20130116
  Receipt Date: 20130116
  Transmission Date: 20140127
  Serious: Yes (Hospitalization)
  Sender: FDA-Public Use
  Company Number: FR-SANOFI-AVENTIS-2013SA001389

PATIENT
  Age: 72 Year
  Sex: Male

DRUGS (7)
  1. AMAREL [Suspect]
     Indication: DIABETES MELLITUS
     Dosage: STRENGTH: 2 MG
     Route: 048
     Dates: start: 201112, end: 20121004
  2. KARDEGIC [Suspect]
     Indication: PRODUCT USED FOR UNKNOWN INDICATION
     Dosage: STRENGTH: 75 MG
     Route: 048
  3. VICTOZA [Suspect]
     Indication: DIABETES MELLITUS
     Dosage: STRENGTH: 1.2 MG
     Route: 048
     Dates: start: 201112, end: 20121004
  4. GLUCOPHAGE [Suspect]
     Indication: DIABETES MELLITUS
     Dosage: STRENGTH: 1000 MG TAB
     Route: 048
  5. COAPROVEL [Suspect]
     Indication: PRODUCT USED FOR UNKNOWN INDICATION
     Dosage: STRENGTH: 300/25 MG COATED TAB
     Route: 048
  6. EZETROL [Suspect]
     Indication: PRODUCT USED FOR UNKNOWN INDICATION
     Dosage: STRENGTH: 10 MG TAB
     Route: 048
  7. CHIBRO-PROSCAR [Suspect]
     Indication: PRODUCT USED FOR UNKNOWN INDICATION
     Route: 048

REACTIONS (2)
  - Pancreatitis [Recovered/Resolved]
  - Pain [Recovered/Resolved]
